FAERS Safety Report 4747889-4 (Version None)
Quarter: 2005Q3

REPORT INFORMATION
  Report Type: 
  Country: None (occurrence: None)
  Receive Date: 20050816
  Receipt Date: 20050804
  Transmission Date: 20060218
  Serious: Yes (Death)
  Sender: FDA-Public Use
  Company Number: 2005-BP-13358RO

PATIENT
  Age: 46 Year
  Sex: Female

DRUGS (2)
  1. CITALOPRAM HYDROBROMIDE [Suspect]
  2. ETHANOL (ETHANOL) [Suspect]

REACTIONS (3)
  - BLOOD ALCOHOL INCREASED [None]
  - COMPLETED SUICIDE [None]
  - DRUG TOXICITY [None]
